FAERS Safety Report 4367253-X (Version None)
Quarter: 2004Q2

REPORT INFORMATION
  Report Type: 
  Country: None (occurrence: None)
  Receive Date: 20040524
  Receipt Date: 20040511
  Transmission Date: 20050107
  Serious: Yes (Hospitalization)
  Sender: FDA-Public Use
  Company Number: 2004213091US

PATIENT
  Age: 61 Year
  Sex: Male

DRUGS (2)
  1. CAMPTOSAR [Suspect]
     Indication: METASTATIC RENAL CELL CARCINOMA
     Dosage: CYCLIC, IV
     Route: 042
     Dates: start: 20040204, end: 20040324
  2. GEMCITABINE (GEMCITABINE) [Suspect]
     Indication: METASTATIC RENAL CELL CARCINOMA
     Dosage: CYCLIC, IV
     Route: 042
     Dates: start: 20040204, end: 20040324

REACTIONS (3)
  - COMPUTERISED TOMOGRAM ABNORMAL [None]
  - INFECTION [None]
  - LUNG DISORDER [None]
